FAERS Safety Report 23170893 (Version 1)
Quarter: 2023Q4

REPORT INFORMATION
  Report Type: Spontaneous
  Country: ES (occurrence: ES)
  Receive Date: 20231110
  Receipt Date: 20231110
  Transmission Date: 20240109
  Serious: Yes (Other)
  Sender: FDA-Public Use
  Company Number: None

PATIENT
  Age: 68 Year

DRUGS (4)
  1. TACROLIMUS [Suspect]
     Active Substance: TACROLIMUS
     Indication: Product used for unknown indication
     Dosage: UNK UNK, UNKNOWN FREQ.
  2. ECULIZUMAB [Concomitant]
     Active Substance: ECULIZUMAB
     Indication: Haemolytic uraemic syndrome
     Dosage: UNK UNK, UNKNOWN FREQ.
     Dates: start: 2015, end: 202212
  3. ECULIZUMAB [Concomitant]
     Active Substance: ECULIZUMAB
     Indication: Eosinophilic granulomatosis with polyangiitis
     Dosage: UNK UNK, UNKNOWN FREQ.
     Dates: start: 2015, end: 202212
  4. PREDNISONE [Concomitant]
     Active Substance: PREDNISONE
     Indication: Product used for unknown indication
     Dosage: UNK UNK, UNKNOWN FREQ.

REACTIONS (4)
  - Sepsis [Unknown]
  - Colitis ulcerative [Unknown]
  - Infection [Unknown]
  - Cytomegalovirus infection [Unknown]

NARRATIVE: CASE EVENT DATE: 20220101
